FAERS Safety Report 6902629-5 (Version None)
Quarter: 2010Q3

REPORT INFORMATION
  Report Type: 
  Country: None (occurrence: None)
  Receive Date: 20100803
  Receipt Date: 20080730
  Transmission Date: 20110219
  Serious: No
  Sender: FDA-Public Use
  Company Number: US-PFIZER INC-2008064311

PATIENT
  Sex: Female
  Weight: 104.5 kg

DRUGS (3)
  1. LYRICA [Suspect]
     Indication: PAIN IN EXTREMITY
     Dates: start: 20080730
  2. LOTREL [Concomitant]
  3. PERCOCET [Concomitant]

REACTIONS (1)
  - DRUG INEFFECTIVE [None]
